FAERS Safety Report 10529780 (Version 1)
Quarter: 2014Q4

REPORT INFORMATION
  Report Type: Spontaneous
  Country: US (occurrence: None)
  Receive Date: 20141017
  Receipt Date: 20141017
  Transmission Date: 20150528
  Serious: Yes (Hospitalization)
  Sender: FDA-Public Use
  Company Number: NSR_01637_2014

PATIENT
  Age: 16 Year
  Sex: Male
  Weight: 82.4 kg

DRUGS (1)
  1. ALLOPURINOL. [Suspect]
     Active Substance: ALLOPURINOL
     Indication: HYPERTENSION

REACTIONS (1)
  - Drug reaction with eosinophilia and systemic symptoms [None]
